FAERS Safety Report 6411171-X (Version None)
Quarter: 2009Q4

REPORT INFORMATION
  Report Type: 
  Country: None (occurrence: None)
  Receive Date: 20091022
  Receipt Date: 20091012
  Transmission Date: 20100525
  Serious: Yes (Other)
  Sender: FDA-Public Use
  Company Number: US-PFIZER INC-2009237696

PATIENT

DRUGS (1)
  1. GEODON [Suspect]
     Dosage: 20 MG, UNK

REACTIONS (14)
  - ABASIA [None]
  - ABDOMINAL PAIN UPPER [None]
  - COORDINATION ABNORMAL [None]
  - DIARRHOEA [None]
  - DYSURIA [None]
  - FEELING ABNORMAL [None]
  - HALLUCINATION [None]
  - HEADACHE [None]
  - NAUSEA [None]
  - NERVOUSNESS [None]
  - SOMNOLENCE [None]
  - SUICIDAL IDEATION [None]
  - TREMOR [None]
  - VOMITING [None]
